FAERS Safety Report 20292129 (Version 1)
Quarter: 2022Q1

REPORT INFORMATION
  Report Type: Spontaneous
  Country: US (occurrence: US)
  Receive Date: 20220104
  Receipt Date: 20220104
  Transmission Date: 20220424
  Serious: Yes (Other)
  Sender: FDA-Public Use
  Company Number: US-Fresenius Kabi-FK202114810

PATIENT
  Age: 23 Year
  Sex: Male

DRUGS (7)
  1. HALOPERIDOL LACTATE [Suspect]
     Active Substance: HALOPERIDOL LACTATE
     Indication: Mental status changes
     Route: 030
  2. HALOPERIDOL LACTATE [Suspect]
     Active Substance: HALOPERIDOL LACTATE
     Route: 030
  3. RISPERIDONE [Suspect]
     Active Substance: RISPERIDONE
     Indication: Substance-induced psychotic disorder
     Route: 065
  4. RISPERIDONE [Suspect]
     Active Substance: RISPERIDONE
     Route: 065
  5. DEXTROMETHORPHAN [Suspect]
     Active Substance: DEXTROMETHORPHAN
     Indication: Nasopharyngitis
     Dosage: COLD MEDICATION CONTAINING DEXTROMETHORPHAN
     Route: 065
  6. LORAZEPAM [Concomitant]
     Active Substance: LORAZEPAM
     Indication: Mental status changes
     Route: 065
  7. LORAZEPAM [Concomitant]
     Active Substance: LORAZEPAM
     Route: 065

REACTIONS (1)
  - Catatonia [Recovered/Resolved]
